FAERS Safety Report 6919294-3 (Version None)
Quarter: 2010Q3

REPORT INFORMATION
  Report Type: 
  Country: None (occurrence: None)
  Receive Date: 20100811
  Receipt Date: 20100804
  Transmission Date: 20110219
  Serious: Yes (Hospitalization)
  Sender: FDA-Public Use
  Company Number: A0865996A

PATIENT
  Age: 66 Year
  Sex: Male
  Weight: 129.5 kg

DRUGS (10)
  1. AVANDIA [Suspect]
     Dosage: 8MG PER DAY
     Dates: start: 20030101, end: 20090301
  2. CHEMOTHERAPY [Concomitant]
  3. TRICOR [Concomitant]
  4. HYZAAR [Concomitant]
  5. MULTI-VITAMIN [Concomitant]
  6. COZAAR [Concomitant]
  7. ASPIRIN [Concomitant]
  8. FLOMAX [Concomitant]
  9. COREG [Concomitant]
  10. ZYRTEC [Concomitant]

REACTIONS (3)
  - CARDIOVASCULAR DISORDER [None]
  - CEREBROVASCULAR ACCIDENT [None]
  - EMOTIONAL DISTRESS [None]
